FAERS Safety Report 9625170 (Version 2)
Quarter: 2013Q4

REPORT INFORMATION
  Report Type: Spontaneous
  Country: US (occurrence: US)
  Receive Date: 20131016
  Receipt Date: 20131023
  Transmission Date: 20140711
  Serious: Yes (Death, Hospitalization, Other)
  Sender: FDA-Public Use
  Company Number: US-BAXTER-2013BAX039886

PATIENT
  Age: 32 Year
  Sex: Male

DRUGS (2)
  1. DIANEAL LOW CALCIUM [Suspect]
     Indication: PERITONEAL DIALYSIS
     Route: 033
     Dates: start: 201110, end: 20131011
  2. DIANEAL LOW CALCIUM [Suspect]
     Indication: PERITONEAL DIALYSIS
     Route: 033
     Dates: start: 201110, end: 20131011

REACTIONS (10)
  - Cardiac failure [Fatal]
  - Cardiac arrest [Fatal]
  - Infected fistula [Recovering/Resolving]
  - Staphylococcal infection [Recovering/Resolving]
  - Aortic stenosis [Unknown]
  - Condition aggravated [Unknown]
  - Anaemia [Unknown]
  - Pulmonary oedema [Unknown]
  - Haemoglobin decreased [Recovering/Resolving]
  - Pyrexia [Unknown]
